FAERS Safety Report 7777071-8 (Version None)
Quarter: 2011Q3

REPORT INFORMATION
  Report Type: 
  Country: None (occurrence: None)
  Receive Date: 20110926
  Receipt Date: 20110926
  Transmission Date: 20111222
  Serious: Yes (Hospitalization, Other)
  Sender: FDA-Public Use
  Company Number: None

PATIENT
  Age: 47 Year
  Sex: Female
  Weight: 77.564 kg

DRUGS (1)
  1. METHOTREXATE [Suspect]
     Indication: RHEUMATOID ARTHRITIS
     Dosage: 1 INJECTION
     Route: 030
     Dates: start: 20110608, end: 20110608

REACTIONS (15)
  - BLOOD CREATININE INCREASED [None]
  - WHITE BLOOD CELL COUNT INCREASED [None]
  - FATIGUE [None]
  - DYSSTASIA [None]
  - CYSTITIS [None]
  - RENAL ATROPHY [None]
  - POLLAKIURIA [None]
  - PAIN [None]
  - VOMITING [None]
  - DECREASED APPETITE [None]
  - HEADACHE [None]
  - NAUSEA [None]
  - ALOPECIA [None]
  - BLOOD URINE PRESENT [None]
  - FEELING ABNORMAL [None]
